FAERS Safety Report 9467556 (Version 2)
Quarter: 2013Q3

REPORT INFORMATION
  Report Type: Spontaneous
  Country: US (occurrence: US)
  Receive Date: 20130821
  Receipt Date: 20130821
  Transmission Date: 20140515
  Serious: No
  Sender: FDA-Public Use
  Company Number: US-MYLANLABS-2013S1012446

PATIENT
  Age: 77 Year
  Sex: Female
  Weight: 68.04 kg

DRUGS (2)
  1. BUDESONIDE CAPSULES [Suspect]
     Indication: CROHN^S DISEASE
     Dates: start: 20130506, end: 20130531
  2. ATENOLOL [Concomitant]
     Route: 048

REACTIONS (4)
  - Drug ineffective [Recovered/Resolved]
  - Diarrhoea [Recovered/Resolved]
  - Syncope [Recovered/Resolved]
  - Dehydration [Recovered/Resolved]
